FAERS Safety Report 4872927-8 (Version None)
Quarter: 2006Q1

REPORT INFORMATION
  Report Type: 
  Country: None (occurrence: None)
  Receive Date: 20060105
  Receipt Date: 20050314
  Transmission Date: 20060701
  Serious: No
  Sender: FDA-Public Use
  Company Number: US-BRISTOL-MYERS SQUIBB COMPANY-12896783

PATIENT
  Age: 66 Year
  Sex: Female
  Weight: 61 kg

DRUGS (8)
  1. SERZONE [Suspect]
     Indication: DEPRESSION
     Route: 048
  2. XANAX [Suspect]
  3. SYNTHROID [Concomitant]
  4. ESTROGEN PATCH [Concomitant]
  5. ZANTAC [Concomitant]
  6. PEPCID [Concomitant]
  7. IMODIUM [Concomitant]
  8. TUMS [Concomitant]

REACTIONS (11)
  - ABDOMINAL PAIN UPPER [None]
  - CHEST PAIN [None]
  - CHILLS [None]
  - DIARRHOEA [None]
  - DIZZINESS [None]
  - DYSPEPSIA [None]
  - FEELING ABNORMAL [None]
  - NAUSEA [None]
  - PAIN [None]
  - PANIC ATTACK [None]
  - PARAESTHESIA [None]
